FAERS Safety Report 8978243 (Version 2)
Quarter: 2014Q1

REPORT INFORMATION
  Report Type: Spontaneous
  Country: US (occurrence: US)
  Receive Date: 20121221
  Receipt Date: 20140129
  Transmission Date: 20141002
  Serious: No
  Sender: FDA-Public Use
  Company Number: US-ELI_LILLY_AND_COMPANY-US201212005606

PATIENT
  Age: 39 Year
  Sex: Female
  Weight: 90.25 kg

DRUGS (4)
  1. EFFIENT [Suspect]
     Indication: PRODUCT USED FOR UNKNOWN INDICATION
     Dosage: 10 MG, QD
     Route: 048
  2. LIPITOR [Concomitant]
     Dosage: 40 MG, QD
     Route: 048
  3. VASOTEC                            /00574902/ [Concomitant]
     Dosage: 5 MG, QD
     Route: 048
  4. COREG [Concomitant]
     Dosage: 6.25 MG, QD
     Route: 048

REACTIONS (1)
  - No adverse event [Unknown]
